FAERS Safety Report 5119234-6 (Version None)
Quarter: 2006Q4

REPORT INFORMATION
  Report Type: 
  Country: None (occurrence: None)
  Receive Date: 20061002
  Receipt Date: 20061002
  Transmission Date: 20070319
  Serious: No
  Sender: FDA-Public Use
  Company Number: None

PATIENT
  Age: 44 Year
  Sex: Male

DRUGS (2)
  1. KALETRA [Suspect]
     Dosage: TABLET
  2. KALETRA [Suspect]
     Dosage: CAPSULE

REACTIONS (3)
  - DRUG DISPENSING ERROR [None]
  - DRUG DOSE OMISSION [None]
  - MEDICATION ERROR [None]
